FAERS Safety Report 5008516-4 (Version None)
Quarter: 2006Q2

REPORT INFORMATION
  Report Type: 
  Country: None (occurrence: None)
  Receive Date: 20060522
  Receipt Date: 20060522
  Transmission Date: 20061013
  Serious: Yes (Hospitalization)
  Sender: FDA-Public Use
  Company Number: None

PATIENT
  Age: 66 Year
  Sex: Male
  Weight: 74 kg

DRUGS (6)
  1. LITHIUM CARBONATE [Suspect]
     Indication: BIPOLAR DISORDER
     Dosage: 600MG  TWICE DAILY  PO
     Route: 048
     Dates: start: 20050204, end: 20060202
  2. COLESTID [Concomitant]
  3. FLUOXETINE [Concomitant]
  4. LORAZEPAM [Concomitant]
  5. RISPERIDONE [Concomitant]
  6. ZOLPIDEM TARTRATE [Concomitant]

REACTIONS (4)
  - CONFUSIONAL STATE [None]
  - DRUG LEVEL ABOVE THERAPEUTIC [None]
  - RENAL DISORDER [None]
  - THERAPEUTIC AGENT TOXICITY [None]
